FAERS Safety Report 9752284 (Version 1)
Quarter: 2013Q4

REPORT INFORMATION
  Report Type: Spontaneous
  Country: GB (occurrence: None)
  Receive Date: 20131211
  Receipt Date: 20131211
  Transmission Date: 20140711
  Serious: Yes (Other)
  Sender: FDA-Public Use
  Company Number: AUR-APL-2013-10121

PATIENT
  Age: 20 Year
  Sex: Female
  Weight: 22.05 kg

DRUGS (4)
  1. FLUCONAZOLE (FLUCONAZOLE) [Suspect]
     Indication: PRODUCT USED FOR UNKNOWN INDICATION
     Dosage: UNKNOWN
     Dates: start: 20130917, end: 20130918
  2. CLOTRIMAZOLE (CLOTRIMAZOLE) [Concomitant]
  3. IBPROFEN (IBUPROFEN) [Concomitant]
  4. LEVOTHYROXINE (LEVOTHYROXINE) [Concomitant]

REACTIONS (2)
  - Blister [None]
  - Rash [None]
